FAERS Safety Report 8997119 (Version 1)
Quarter: 2012Q4

REPORT INFORMATION
  Report Type: Spontaneous
  Country: CA (occurrence: None)
  Receive Date: 20121221
  Receipt Date: 20121221
  Transmission Date: 20130627
  Serious: Yes (Other)
  Sender: FDA-Public Use
  Company Number: AUR-APL-2012-05443

PATIENT
  Age: 58 Year
  Sex: Male

DRUGS (9)
  1. CITALOPRAM (CITALOPRAM) [Suspect]
     Indication: DRUG USE FOR UNKNOWN INDICATION
  2. CITALOPRAM (CITALOPRAM) [Suspect]
     Indication: DRUG USE FOR UNKNOWN INDICATION
     Route: 048
  3. PAROXETINE (PAROXETINE) [Suspect]
     Indication: DRUG USE FOR UNKNOWN INDICATION
     Dosage: 5 and 10 mg (1 D)
  4. SERTRALINE (SERTRALINE) (SERTRALINE) [Suspect]
     Indication: COMPULSIONS
  5. OLANZAPINE (OLANZAPINE) [Suspect]
     Indication: DRUG USE FOR UNKNOWN INDICATION
     Route: 048
  6. QUETIAPINE (QUETIAPINE) (QUETIAPINE) [Suspect]
     Indication: DRUG USE FOR UNKNOWN INDICATION
  7. ESCITALOPRAM [Suspect]
     Indication: DRUG USE FOR UNKNOWN INDICATION
  8. HALOPERIDOL [Suspect]
     Indication: DRUG USE FOR UNKNOWN INDICATION
  9. CLOMIPRAMINE [Suspect]
     Indication: OBSESSIVE-COMPULSIVE DISORDER
     Route: 048

REACTIONS (4)
  - Aphasia [None]
  - Atrophy [None]
  - Abnormal behaviour [None]
  - Disease progression [None]
